FAERS Safety Report 18187321 (Version 2)
Quarter: 2022Q4

REPORT INFORMATION
  Report Type: Spontaneous
  Country: US (occurrence: US)
  Receive Date: 20200824
  Receipt Date: 20221013
  Transmission Date: 20230112
  Serious: No
  Sender: FDA-Public Use
  Company Number: US-CELLTRION INC.-2020US019089

PATIENT

DRUGS (1)
  1. INFLECTRA [Suspect]
     Active Substance: INFLIXIMAB-DYYB
     Indication: Product used for unknown indication
     Dosage: UNK
     Route: 065

REACTIONS (9)
  - Unevaluable event [Unknown]
  - Red cell distribution width increased [Unknown]
  - C-reactive protein increased [Unknown]
  - Blood urea increased [Unknown]
  - Blood urea nitrogen/creatinine ratio increased [Unknown]
  - Mean cell haemoglobin concentration decreased [Unknown]
  - Red blood cell sedimentation rate increased [Unknown]
  - Carbon dioxide decreased [Unknown]
  - Anion gap increased [Unknown]
